FAERS Safety Report 18267202 (Version 2)
Quarter: 2020Q3

REPORT INFORMATION
  Report Type: Spontaneous
  Country: NL (occurrence: NL)
  Receive Date: 20200915
  Receipt Date: 20200922
  Transmission Date: 20201103
  Serious: Yes (Other)
  Sender: FDA-Public Use
  Company Number: NL-PFIZER INC-2020344061

PATIENT
  Age: 3 Year
  Sex: Male

DRUGS (3)
  1. CISPLATIN. [Concomitant]
     Active Substance: CISPLATIN
     Indication: HEPATOBLASTOMA
     Dosage: 20 MG/M2, CYCLIC (CYCLE 1:FIRST DOSE REDUCED TO 11.75MG (25% OF RECOMMENDED DOSE, OVER 6 H)
  2. CARBOPLATIN. [Suspect]
     Active Substance: CARBOPLATIN
     Indication: HEPATOBLASTOMA
     Dosage: 75 MG/M2, CYCLIC (CYCLE 1: FIRST DOSE OF 48MG (75 MG/M2) IN 1 H, ON DAY 15)
     Route: 042
  3. DOXORUBICIN HYDROCHLORIDE. [Suspect]
     Active Substance: DOXORUBICIN HYDROCHLORIDE
     Indication: HEPATOBLASTOMA
     Dosage: 30 MG/M2, CYCLIC (FIRST CYCLE, WAS GIVEN IN A 100% DOSE OF 30 MG/M2 ON DAYS 15 AND 16)

REACTIONS (4)
  - Mucosal inflammation [Recovered/Resolved]
  - Product used for unknown indication [Unknown]
  - Toxicity to various agents [Recovered/Resolved]
  - Off label use [Unknown]
